FAERS Safety Report 15488785 (Version 1)
Quarter: 2018Q4

REPORT INFORMATION
  Report Type: Spontaneous
  Country: BY (occurrence: BY)
  Receive Date: 20181011
  Receipt Date: 20181011
  Transmission Date: 20190205
  Serious: Yes (Hospitalization, Other)
  Sender: FDA-Public Use
  Company Number: BY-BAYER-2018-154669

PATIENT
  Age: 27 Year
  Sex: Female

DRUGS (1)
  1. YAZ PLUS [Suspect]
     Active Substance: DROSPIRENONE\ETHINYL ESTRADIOL
     Indication: CONTRACEPTION
     Dosage: UNK
     Route: 048

REACTIONS (4)
  - Pneumonia [None]
  - Deep vein thrombosis [None]
  - Pulmonary embolism [None]
  - Thrombophlebitis [None]

NARRATIVE: CASE EVENT DATE: 2018
